FAERS Safety Report 11183255 (Version 2)
Quarter: 2017Q4

REPORT INFORMATION
  Report Type: Spontaneous
  Country: SE (occurrence: SE)
  Receive Date: 20150611
  Receipt Date: 20171120
  Transmission Date: 20180320
  Serious: Yes (Other)
  Sender: FDA-Public Use
  Company Number: PHHY2015SE069104

PATIENT
  Sex: Female

DRUGS (2)
  1. RIFAMPICIN SANDOZ [Suspect]
     Active Substance: RIFAMPIN
     Dosage: 300 MG,QD
     Route: 065
     Dates: start: 20140507, end: 20141213
  2. RIFAMPICIN SANDOZ [Suspect]
     Active Substance: RIFAMPIN
     Indication: SUBCUTANEOUS ABSCESS
     Dosage: 300 MG, BID
     Route: 065
     Dates: start: 20140225, end: 20141213

REACTIONS (3)
  - Abortion spontaneous [Unknown]
  - Maternal exposure during pregnancy [Unknown]
  - Exposure via partner [Recovered/Resolved]
